FAERS Safety Report 4526367-1 (Version None)
Quarter: 2004Q4

REPORT INFORMATION
  Report Type: 
  Country: None (occurrence: None)
  Receive Date: 20041214
  Receipt Date: 20041129
  Transmission Date: 20050328
  Serious: Yes (Other)
  Sender: FDA-Public Use
  Company Number: US-GLAXOSMITHKLINE-A0535339A

PATIENT
  Age: 50 Year
  Sex: Female

DRUGS (2)
  1. NICOTINE POLACRILEX [Suspect]
     Indication: SMOKING CESSATION THERAPY
     Route: 002
     Dates: start: 20030101, end: 20040601
  2. NICORETTE (MINT) [Suspect]
     Indication: SMOKING CESSATION THERAPY
     Route: 002
     Dates: start: 20040601

REACTIONS (8)
  - ABDOMINAL DISCOMFORT [None]
  - AMNESIA [None]
  - CEREBROVASCULAR ACCIDENT [None]
  - CONFUSIONAL STATE [None]
  - DIABETES MELLITUS NON-INSULIN-DEPENDENT [None]
  - DRUG ABUSER [None]
  - HYPERCALCAEMIA [None]
  - IRRITABILITY [None]
